FAERS Safety Report 23875801 (Version 3)
Quarter: 2024Q4

REPORT INFORMATION
  Report Type: Spontaneous
  Country: US (occurrence: US)
  Receive Date: 20240520
  Receipt Date: 20241114
  Transmission Date: 20250114
  Serious: No
  Sender: SANOFI AVENTIS
  Company Number: US-SA-SAC20240513000484

PATIENT
  Age: 46 Year
  Sex: Female
  Weight: 88.435 kg

DRUGS (2)
  1. FABRAZYME [Suspect]
     Active Substance: AGALSIDASE BETA
     Indication: Fabry^s disease
     Dosage: 100 (70+30) MG, QOW
     Route: 042
     Dates: start: 202311
  2. FABRAZYME [Suspect]
     Active Substance: AGALSIDASE BETA
     Indication: Hepatitis C

REACTIONS (3)
  - Weight decreased [Unknown]
  - Pain [Unknown]
  - Product use in unapproved indication [Unknown]

NARRATIVE: CASE EVENT DATE: 20230901
